FAERS Safety Report 5647397-2 (Version None)
Quarter: 2008Q1

REPORT INFORMATION
  Report Type: 
  Country: None (occurrence: None)
  Receive Date: 20080229
  Receipt Date: 20080229
  Transmission Date: 20080703
  Serious: Yes (Other)
  Sender: FDA-Public Use
  Company Number: None

PATIENT
  Sex: Male
  Weight: 91 kg

DRUGS (3)
  1. OLANZAPINE 2.5 MG TAB 02/17/2008 [Suspect]
     Indication: ADJUSTMENT DISORDER
     Dosage: 2.5 MG HS ORAL
     Route: 048
     Dates: start: 20080217
  2. NICOTINE [Concomitant]
  3. DOCUSATE [Concomitant]

REACTIONS (1)
  - RASH [None]
